FAERS Safety Report 8992195 (Version 1)
Quarter: 2012Q4

REPORT INFORMATION
  Report Type: 
  Country: US (occurrence: US)
  Receive Date: 20121231
  Receipt Date: 20121231
  Transmission Date: 20130627
  Serious: Yes (Other)
  Sender: FDA-Public Use
  Company Number: US-BRISTOL-MYERS SQUIBB COMPANY-17230947

PATIENT
  Age: 34 Year
  Sex: Female

DRUGS (1)
  1. ORENCIA [Suspect]
     Indication: RHEUMATOID ARTHRITIS
     Dosage: last infusion was on 19NOV2012
     Route: 042

REACTIONS (2)
  - Pulmonary granuloma [Not Recovered/Not Resolved]
  - Drug ineffective [Not Recovered/Not Resolved]
